FAERS Safety Report 8003328-1 (Version None)
Quarter: 2011Q4

REPORT INFORMATION
  Report Type: 
  Country: None (occurrence: None)
  Receive Date: 20111222
  Receipt Date: 20111219
  Transmission Date: 20120403
  Serious: Yes (Other)
  Sender: FDA-Public Use
  Company Number: PHEH2011US008609

PATIENT
  Sex: Female
  Weight: 90.703 kg

DRUGS (13)
  1. ALPRAZOLAM [Concomitant]
     Dosage: UNK UKN, UNK
     Dates: start: 20110908
  2. FLUOXETINE [Concomitant]
     Dosage: UNK UKN, UNK
     Dates: start: 20110721
  3. VITAMIN D [Concomitant]
  4. PROZAC [Concomitant]
  5. LORAZEPAM [Concomitant]
     Dosage: UNK UKN, UNK
     Dates: start: 20110919
  6. TRAZODONE HCL [Concomitant]
     Dosage: UNK UKN, UNK
     Dates: start: 20110916
  7. TRAZODONE HCL [Concomitant]
     Dosage: UNK UKN, UNK
     Dates: start: 20100910
  8. OXYCODONE HCL [Concomitant]
     Dosage: UNK UKN, UNK
     Dates: start: 20110831
  9. COPAXONE [Concomitant]
     Dosage: 20 MG, DAILY
     Dates: start: 20101029
  10. TEGRETOL [Concomitant]
  11. GILENYA [Suspect]
     Indication: MULTIPLE SCLEROSIS
     Dosage: 0.5 MG, QD
     Route: 048
     Dates: start: 20110929
  12. FLUOXETINE [Concomitant]
     Dosage: UNK UKN, UNK
     Dates: start: 20110316
  13. IBUPROFEN (ADVIL) [Concomitant]

REACTIONS (8)
  - TRANSIENT ISCHAEMIC ATTACK [None]
  - VISUAL IMPAIRMENT [None]
  - INFLUENZA LIKE ILLNESS [None]
  - BALANCE DISORDER [None]
  - CHILLS [None]
  - PYREXIA [None]
  - EAR PAIN [None]
  - RESPIRATORY DISORDER [None]
